FAERS Safety Report 15651606 (Version 1)
Quarter: 2018Q4

REPORT INFORMATION
  Report Type: Report from Study
  Country: CO (occurrence: CO)
  Receive Date: 20181123
  Receipt Date: 20181123
  Transmission Date: 20190205
  Serious: Yes (Death, Hospitalization)
  Sender: FDA-Public Use
  Company Number: CO-IPSEN BIOPHARMACEUTICALS, INC.-2018-17852

PATIENT
  Age: 62 Year
  Sex: Female

DRUGS (1)
  1. SOMATULINE 120MG [Suspect]
     Active Substance: LANREOTIDE ACETATE
     Indication: NEUROENDOCRINE TUMOUR
     Dosage: 120 MG
     Route: 058
     Dates: start: 20180623, end: 20180711

REACTIONS (6)
  - Neoplasm progression [Fatal]
  - Nervous system disorder [Unknown]
  - Haematuria [Unknown]
  - Dyspnoea [Unknown]
  - Unevaluable event [Unknown]
  - Decreased appetite [Unknown]
